FAERS Safety Report 8399460-3 (Version None)
Quarter: 2012Q2

REPORT INFORMATION
  Report Type: 
  Country: None (occurrence: None)
  Receive Date: 20120525
  Receipt Date: 20110505
  Transmission Date: 20120825
  Serious: Yes (Other)
  Sender: FDA-Public Use
  Company Number: ADE12-041

PATIENT
  Age: 51 Year
  Sex: Male

DRUGS (1)
  1. HEPARIN SODIUM INJECTION [Suspect]
     Indication: CATHETERISATION CARDIAC
     Dosage: INTRAVENOUS
     Route: 042
     Dates: start: 20110427

REACTIONS (1)
  - THROMBOSIS IN DEVICE [None]
